FAERS Safety Report 25084202 (Version 1)
Quarter: 2025Q1

REPORT INFORMATION
  Report Type: Spontaneous
  Country: US (occurrence: US)
  Receive Date: 20250317
  Receipt Date: 20250317
  Transmission Date: 20250409
  Serious: Yes (Other)
  Sender: Unknown Manufacturer
  Company Number: US-KOANAAP-SML-US-2025-00157

PATIENT
  Age: 36 Year
  Sex: Female

DRUGS (4)
  1. BUSULFAN [Suspect]
     Active Substance: BUSULFAN
     Indication: Bone marrow conditioning regimen
  2. AZACITIDINE [Suspect]
     Active Substance: AZACITIDINE
     Indication: Acute myeloid leukaemia
  3. CYCLOPHOSPHAMIDE [Suspect]
     Active Substance: CYCLOPHOSPHAMIDE
     Indication: Bone marrow conditioning regimen
     Dosage: 20 MG/KG ON DAY -3
  4. CYCLOPHOSPHAMIDE [Suspect]
     Active Substance: CYCLOPHOSPHAMIDE
     Dosage: 50 MG/KG TWICE DAILY ON DAYS 3 AND 4 POST TRANSPLANT

REACTIONS (1)
  - Drug ineffective [Unknown]
